FAERS Safety Report 6700249-9 (Version None)
Quarter: 2010Q2

REPORT INFORMATION
  Report Type: 
  Country: None (occurrence: None)
  Receive Date: 20100426
  Receipt Date: 20090709
  Transmission Date: 20101027
  Serious: Yes (Hospitalization)
  Sender: FDA-Public Use
  Company Number: WAES 0907USA01313

PATIENT
  Age: 81 Year
  Sex: Female

DRUGS (6)
  1. SINGULAIR [Suspect]
     Indication: HYPERSENSITIVITY
     Dosage: 10 MG/DAILY/PO
     Route: 048
     Dates: start: 20050101
  2. ADVAIR DISKUS 100/50 [Concomitant]
  3. LIPITOR [Concomitant]
  4. CALCIUM (UNSPECIFIED) [Concomitant]
  5. METFORMIN HYDROCHLORIDE [Concomitant]
  6. VITAMINS (UNSPECIFIED) [Concomitant]

REACTIONS (1)
  - UPPER RESPIRATORY TRACT INFECTION [None]
